FAERS Safety Report 6858721-7 (Version None)
Quarter: 2010Q3

REPORT INFORMATION
  Report Type: 
  Country: None (occurrence: None)
  Receive Date: 20100719
  Receipt Date: 20080211
  Transmission Date: 20110219
  Serious: No
  Sender: FDA-Public Use
  Company Number: US-PFIZER INC-2008014718

PATIENT
  Sex: Female
  Weight: 97.7 kg

DRUGS (6)
  1. CHANTIX [Suspect]
     Indication: SMOKING CESSATION THERAPY
     Route: 048
     Dates: start: 20080211
  2. LEXAPRO [Concomitant]
  3. REMERON [Concomitant]
  4. ATIVAN [Concomitant]
  5. SINEMET [Concomitant]
  6. VITAMINS [Concomitant]

REACTIONS (3)
  - AGITATION [None]
  - FATIGUE [None]
  - HEADACHE [None]
